FAERS Safety Report 21837593 (Version 1)
Quarter: 2023Q1

REPORT INFORMATION
  Report Type: Spontaneous
  Country: US (occurrence: None)
  Receive Date: 20230106
  Receipt Date: 20230106
  Transmission Date: 20230417
  Serious: Yes (unspecified)
  Sender: FDA-Public Use
  Company Number: None

PATIENT
  Age: 53 Year
  Sex: Male
  Weight: 158 kg

DRUGS (1)
  1. PERFLUTREN [Suspect]
     Active Substance: PERFLUTREN
     Route: 042
     Dates: start: 20221215

REACTIONS (1)
  - Testicular pain [None]

NARRATIVE: CASE EVENT DATE: 20221215
